FAERS Safety Report 21973924 (Version 2)
Quarter: 2023Q1

REPORT INFORMATION
  Report Type: Spontaneous
  Country: US (occurrence: US)
  Receive Date: 20230209
  Receipt Date: 20230214
  Transmission Date: 20230418
  Serious: No
  Sender: FDA-Public Use
  Company Number: US-PFIZER INC-202300060256

PATIENT
  Age: 70 Year
  Sex: Male
  Weight: 101.6 kg

DRUGS (6)
  1. TESTOSTERONE [Suspect]
     Active Substance: TESTOSTERONE
     Dosage: 1 MG EVERY THREE WEEKS
  2. LYRICA [Concomitant]
     Active Substance: PREGABALIN
     Dosage: UNK (I TAKE LYRICA WHICH IS 150)
  3. CLONAZEPAM [Concomitant]
     Active Substance: CLONAZEPAM
     Dosage: 20 MG, 1X/DAY (I AM TAKING A BED TIME TWO CLONAZEPAM 10 MG EACH)
  4. NAPROXEN [Concomitant]
     Active Substance: NAPROXEN
     Dosage: 200 MG
  5. BUPROPION [Concomitant]
     Active Substance: BUPROPION
     Dosage: 10 MG
  6. ATORVASTATIN [Concomitant]
     Active Substance: ATORVASTATIN
     Dosage: UNK

REACTIONS (5)
  - Off label use [Unknown]
  - Incorrect dose administered [Unknown]
  - Headache [Unknown]
  - Palpitations [Unknown]
  - Heart rate decreased [Unknown]
